FAERS Safety Report 6826883-3 (Version None)
Quarter: 2010Q3

REPORT INFORMATION
  Report Type: 
  Country: None (occurrence: None)
  Receive Date: 20100709
  Receipt Date: 20100701
  Transmission Date: 20110219
  Serious: Yes (Disabling)
  Sender: FDA-Public Use
  Company Number: US-ROCHE-711499

PATIENT
  Sex: Male
  Weight: 74.8 kg

DRUGS (4)
  1. AVASTIN [Suspect]
     Indication: METASTATIC RENAL CELL CARCINOMA
     Dosage: FREQUENCY: Q2 WEEKS X 5 DOSES.
     Route: 042
     Dates: start: 20100104, end: 20100311
  2. EVEROLIMUS [Suspect]
     Indication: PRODUCT USED FOR UNKNOWN INDICATION
     Dosage: DRUG TRADE NAME: AFINITOR.
     Route: 065
  3. LISINOPRIL [Concomitant]
  4. MEGACE [Concomitant]

REACTIONS (1)
  - NECROTISING FASCIITIS [None]
